FAERS Safety Report 21089760 (Version 1)
Quarter: 2022Q3

REPORT INFORMATION
  Report Type: Report from Study
  Country: US (occurrence: US)
  Receive Date: 20220715
  Receipt Date: 20220715
  Transmission Date: 20221027
  Serious: Yes (Hospitalization)
  Sender: FDA-Public Use
  Company Number: US-TAKEDA-2022TUS047757

PATIENT
  Sex: Male

DRUGS (4)
  1. TEDUGLUTIDE [Suspect]
     Active Substance: TEDUGLUTIDE
     Indication: Short-bowel syndrome
     Dosage: 3.69 MILLIGRAM, QD
     Route: 058
     Dates: start: 202202
  2. TEDUGLUTIDE [Suspect]
     Active Substance: TEDUGLUTIDE
     Indication: Short-bowel syndrome
     Dosage: 3.69 MILLIGRAM, QD
     Route: 058
     Dates: start: 202202
  3. TEDUGLUTIDE [Suspect]
     Active Substance: TEDUGLUTIDE
     Indication: Short-bowel syndrome
     Dosage: 3.69 MILLIGRAM, QD
     Route: 058
     Dates: start: 202202
  4. TEDUGLUTIDE [Suspect]
     Active Substance: TEDUGLUTIDE
     Indication: Short-bowel syndrome
     Dosage: 3.69 MILLIGRAM, QD
     Route: 058
     Dates: start: 202202

REACTIONS (1)
  - Hospitalisation [Unknown]
